FAERS Safety Report 7401746-3 (Version None)
Quarter: 2011Q1

REPORT INFORMATION
  Report Type: 
  Country: None (occurrence: None)
  Receive Date: 20110329
  Receipt Date: 20110315
  Transmission Date: 20110831
  Serious: No
  Sender: FDA-Public Use
  Company Number: B0707442A

PATIENT
  Age: 24 Month
  Sex: Female
  Weight: 12.9729 kg

DRUGS (1)
  1. AMOXICILLIN AND CLAVULANATE POTASSIUM [Suspect]
     Dosage: ORAL
     Route: 048

REACTIONS (2)
  - STEVENS-JOHNSON SYNDROME [None]
  - HEPATITIS CHOLESTATIC [None]
